FAERS Safety Report 15194108 (Version 1)
Quarter: 2018Q3

REPORT INFORMATION
  Report Type: Other
  Country: DE (occurrence: DE)
  Receive Date: 20180725
  Receipt Date: 20180725
  Transmission Date: 20181010
  Serious: Yes (Death)
  Sender: FDA-Public Use
  Company Number: DE-ORCHID HEALTHCARE-2052709

PATIENT
  Age: 71 Year
  Sex: Female

DRUGS (4)
  1. MELPERONE [Concomitant]
     Active Substance: MELPERONE
     Route: 065
  2. METAMIZOLE [Concomitant]
     Active Substance: METAMIZOLE
     Route: 065
  3. PROTHIPENDYL [Interacting]
     Active Substance: PROTHIPENDYL
     Route: 065
  4. OLANZAPINE. [Suspect]
     Active Substance: OLANZAPINE
     Route: 065

REACTIONS (6)
  - Cardiotoxicity [Fatal]
  - Brain oedema [Fatal]
  - Pulmonary oedema [Fatal]
  - Electrocardiogram QT prolonged [Fatal]
  - Drug interaction [Fatal]
  - Toxicity to various agents [Fatal]
